FAERS Safety Report 7777271-7 (Version None)
Quarter: 2011Q3

REPORT INFORMATION
  Report Type: 
  Country: None (occurrence: None)
  Receive Date: 20110926
  Receipt Date: 20110920
  Transmission Date: 20111222
  Serious: Yes (Death, Other)
  Sender: FDA-Public Use
  Company Number: PHHY2011CR83264

PATIENT
  Age: 92 Year
  Sex: Male

DRUGS (2)
  1. VASTAREL [Concomitant]
     Dosage: UNK
  2. DIOVAN HCT [Suspect]
     Indication: HYPERTENSION
     Dosage: 1 DF, (VALSARTAN 160, HYDROCHLOROTHIAZIDE 12.5 MG), DAILY
     Route: 048

REACTIONS (4)
  - HYPERHIDROSIS [None]
  - VOMITING [None]
  - CARDIAC ARREST [None]
  - DEATH [None]
